FAERS Safety Report 5169426-5 (Version None)
Quarter: 2006Q4

REPORT INFORMATION
  Report Type: 
  Country: None (occurrence: None)
  Receive Date: 20061201
  Receipt Date: 20061117
  Transmission Date: 20070319
  Serious: Yes (Other)
  Sender: FDA-Public Use
  Company Number: 2006EU002503

PATIENT
  Age: 44 Year
  Sex: Male

DRUGS (26)
  1. FK506 (TACROLIMUS CAPSULES) [Suspect]
     Indication: LIVER TRANSPLANT
     Dosage: 3 MG, BID; ORAL
     Route: 048
     Dates: start: 20060114, end: 20060703
  2. MYCOPHENOLATE MOFETIL [Suspect]
     Indication: LIVER TRANSPLANT
     Dosage: 1000 MG, UID/QD; ORAL, 1000 MG, UID/QD, IV NOS
     Route: 048
     Dates: start: 20060109, end: 20060114
  3. MYCOPHENOLATE MOFETIL [Suspect]
     Indication: LIVER TRANSPLANT
     Dosage: 1000 MG, UID/QD; ORAL, 1000 MG, UID/QD, IV NOS
     Route: 048
     Dates: start: 20060114, end: 20060703
  4. DACLIZUMAB (DACLIZUMAB) [Suspect]
     Indication: LIVER TRANSPLANT
     Dosage: 150 MG, UID/QD, IV NOS
     Route: 042
     Dates: start: 20060109
  5. METHYLPREDNISOLONE [Suspect]
     Indication: LIVER TRANSPLANT
     Dosage: 150 MG, UID/QD; UNK
     Dates: start: 20060109
  6. PIPERILLINE (PIPERACILLIN SODIUM) [Concomitant]
  7. ZOVIRAX [Concomitant]
  8. HEPARIN [Concomitant]
  9. VALACYCLOVIR HCL [Concomitant]
  10. FRAXIPARINE (NADROPARIN CALCIUM) [Concomitant]
  11. ASPEGIC 1000 [Concomitant]
  12. PANTOPRAZOLE SODIUM [Concomitant]
  13. LAMIVUDINE [Concomitant]
  14. BUMETANIDE [Concomitant]
  15. ACETYLCYSTEINE [Concomitant]
  16. KAYEXALATE [Concomitant]
  17. OXACILLIN [Concomitant]
  18. ATARAX [Concomitant]
  19. TARGOCID [Concomitant]
  20. MORPHINE SULFATE [Concomitant]
  21. PERFALGAN [Concomitant]
  22. MORPHINE [Concomitant]
  23. ACUPAN [Concomitant]
  24. IMODIUM [Concomitant]
  25. DOLIPRANE [Concomitant]
  26. DAFALGAN [Concomitant]

REACTIONS (4)
  - GINGIVITIS [None]
  - HERPES VIRUS INFECTION [None]
  - KAPOSI'S SARCOMA [None]
  - WEIGHT DECREASED [None]
